FAERS Safety Report 23454384 (Version 4)
Quarter: 2025Q1

REPORT INFORMATION
  Report Type: Spontaneous
  Country: US (occurrence: US)
  Receive Date: 20240130
  Receipt Date: 20250114
  Transmission Date: 20250408
  Serious: Yes (Disabling, Other)
  Sender: AMGEN
  Company Number: US-HORIZON THERAPEUTICS-HZN-2024-000980

PATIENT
  Age: 61 Year
  Sex: Female

DRUGS (23)
  1. TEPEZZA [Suspect]
     Active Substance: TEPROTUMUMAB-TRBW
     Indication: Graves^ disease
     Route: 042
     Dates: start: 20220224
  2. TEPEZZA [Suspect]
     Active Substance: TEPROTUMUMAB-TRBW
     Indication: Endocrine ophthalmopathy
     Route: 042
     Dates: start: 20220317
  3. TEPEZZA [Suspect]
     Active Substance: TEPROTUMUMAB-TRBW
     Route: 042
     Dates: start: 20220407
  4. TEPEZZA [Suspect]
     Active Substance: TEPROTUMUMAB-TRBW
     Route: 042
     Dates: start: 20220428
  5. TEPEZZA [Suspect]
     Active Substance: TEPROTUMUMAB-TRBW
     Route: 042
     Dates: start: 20220519
  6. TEPEZZA [Suspect]
     Active Substance: TEPROTUMUMAB-TRBW
     Route: 042
     Dates: start: 20220607
  7. TEPEZZA [Suspect]
     Active Substance: TEPROTUMUMAB-TRBW
     Route: 042
     Dates: start: 20220630
  8. TEPEZZA [Suspect]
     Active Substance: TEPROTUMUMAB-TRBW
     Route: 042
     Dates: start: 20220721
  9. Norethindrone-Eth Estradiol [Concomitant]
     Dosage: UNK, QD
     Route: 048
  10. METHIMAZOLE [Concomitant]
     Active Substance: METHIMAZOLE
     Route: 048
  11. TRIAMCINOLONE [Concomitant]
     Active Substance: TRIAMCINOLONE
     Indication: Vaginal discharge
     Dosage: UNK, BID
     Route: 061
     Dates: start: 20220720
  12. Artificial tears [Concomitant]
     Dosage: UNK, Q2H DURING THE DAY (BID OVERNIGHT)
     Route: 065
  13. TAPAZOLE [Concomitant]
     Active Substance: METHIMAZOLE
     Dosage: 5 MILLIGRAM, BID
     Route: 048
     Dates: start: 20200109
  14. TAPAZOLE [Concomitant]
     Active Substance: METHIMAZOLE
     Dosage: 10 MILLIGRAM, QD (TAKE 1.5 TABLETS) (IN THE AM AND 1 TABLET IN THE PM (OR ALL AT ONCE IN THE AM))
     Route: 048
     Dates: start: 20220826, end: 20230112
  15. TAPAZOLE [Concomitant]
     Active Substance: METHIMAZOLE
     Dosage: 10 MILLIGRAM, QD (TAKE 1 TABLET)
     Route: 048
     Dates: start: 20230921, end: 20240426
  16. NORTREL [Concomitant]
     Active Substance: ETHINYL ESTRADIOL\NORETHINDRONE
     Dosage: UNK, QD (TAKE CONTINUOUSLY WITHOUT OFF WEEK)
     Route: 048
     Dates: start: 20190913
  17. NORTREL [Concomitant]
     Active Substance: ETHINYL ESTRADIOL\NORETHINDRONE
     Dosage: UNK, QD (TAKE 1 TABLET BY MOUTH EVERY DAY. TAKE CONTINUOUSLY WITHOUT OFF WEEK) (1/35, 28 1-35 MG-MCG
     Route: 048
     Dates: start: 20220728, end: 20230208
  18. NORTREL [Concomitant]
     Active Substance: ETHINYL ESTRADIOL\NORETHINDRONE
     Route: 048
     Dates: start: 20231015, end: 20240313
  19. SYSTANE (HYPROMELLOSE 2910 (4000 MPA.S)) [Concomitant]
     Active Substance: HYPROMELLOSE 2910 (4000 MPA.S)
     Route: 047
  20. KENALOG [Concomitant]
     Active Substance: TRIAMCINOLONE ACETONIDE
     Dosage: 0.1 PERCENT, BID (APPLY 1 APPLICATION)
     Route: 061
     Dates: start: 20220728, end: 20230809
  21. KENALOG [Concomitant]
     Active Substance: TRIAMCINOLONE ACETONIDE
     Dosage: 0.1 PERCENT, BID (APPLY 1 APPLICATION)
     Route: 061
     Dates: start: 20230809
  22. MACROBID [Concomitant]
     Active Substance: NITROFURANTOIN\NITROFURANTOIN MONOHYDRATE
     Dosage: 100 MILLIGRAM, BID (TAKE 1 CAPSULE, WITH BREAKFAST AND SUPPER FOR 7 DAYS)
     Route: 048
     Dates: start: 20231020, end: 20231027
  23. CALMOSEPTINE [Concomitant]
     Active Substance: MENTHOL\ZINC OXIDE
     Route: 065

REACTIONS (35)
  - Deafness neurosensory [Not Recovered/Not Resolved]
  - Physical disability [Not Recovered/Not Resolved]
  - Disability [Not Recovered/Not Resolved]
  - Major depression [Recovered/Resolved]
  - Pain [Not Recovered/Not Resolved]
  - Injury [Not Recovered/Not Resolved]
  - Anxiety [Recovered/Resolved]
  - Concomitant disease aggravated [Not Recovered/Not Resolved]
  - Discomfort [Not Recovered/Not Resolved]
  - Impaired quality of life [Not Recovered/Not Resolved]
  - Emotional distress [Not Recovered/Not Resolved]
  - Economic problem [Not Recovered/Not Resolved]
  - Product quality issue [Unknown]
  - Ear discomfort [Unknown]
  - Dizziness [Unknown]
  - Dysphagia [Unknown]
  - Weight increased [Unknown]
  - Palpitations [Unknown]
  - Oedema [Unknown]
  - Abdominal discomfort [Unknown]
  - Tremor [Unknown]
  - Hypoaesthesia [Unknown]
  - Paraesthesia [Unknown]
  - Rash [Unknown]
  - Psoriasis [Unknown]
  - Tinnitus [Not Recovered/Not Resolved]
  - Asthenia [Unknown]
  - Fatigue [Unknown]
  - Nausea [Unknown]
  - Diarrhoea [Unknown]
  - Muscle spasms [Unknown]
  - Swelling [Unknown]
  - Adjustment disorder with depressed mood [Unknown]
  - Balance disorder [Recovered/Resolved]
  - Stress [Unknown]

NARRATIVE: CASE EVENT DATE: 20220101
